FAERS Safety Report 14645531 (Version 4)
Quarter: 2018Q4

REPORT INFORMATION
  Report Type: Report from Study
  Country: None (occurrence: US)
  Receive Date: 20180316
  Receipt Date: 20181113
  Transmission Date: 20190204
  Serious: Yes (Other)
  Sender: FDA-Public Use
  Company Number: US-ABBVIE-17K-163-2159091-00

PATIENT
  Age: 47 Year
  Sex: Female

DRUGS (1)
  1. HUMIRA [Suspect]
     Active Substance: ADALIMUMAB
     Indication: HIDRADENITIS
     Route: 058

REACTIONS (12)
  - Impaired work ability [Unknown]
  - Gait disturbance [Unknown]
  - Hypersensitivity [Not Recovered/Not Resolved]
  - Groin pain [Unknown]
  - Exposure during pregnancy [Unknown]
  - Caesarean section [Unknown]
  - Vulvovaginal dryness [Unknown]
  - Cyst [Recovering/Resolving]
  - Mobility decreased [Unknown]
  - Hidradenitis [Not Recovered/Not Resolved]
  - Drug effect incomplete [Not Recovered/Not Resolved]
  - Pain [Unknown]

NARRATIVE: CASE EVENT DATE: 201710
